FAERS Safety Report 4331475-4 (Version None)
Quarter: 2004Q2

REPORT INFORMATION
  Report Type: 
  Country: None (occurrence: None)
  Receive Date: 20040401
  Receipt Date: 20040401
  Transmission Date: 20050107
  Serious: Yes (Life-Threatening)
  Sender: FDA-Public Use
  Company Number: None

PATIENT
  Age: 49 Year
  Sex: Male
  Weight: 104.3273 kg

DRUGS (6)
  1. AVELOX [Suspect]
     Indication: SWELLING
     Dosage: 1 TABLET DAILY OTHER
     Dates: start: 20040305, end: 20040314
  2. PLAQUENIL [Concomitant]
  3. NORVASC [Concomitant]
  4. CARDURA [Concomitant]
  5. VIOXX [Concomitant]
  6. ACETAMINOPHEN [Concomitant]

REACTIONS (5)
  - CONFUSIONAL STATE [None]
  - ECZEMA [None]
  - GRAND MAL CONVULSION [None]
  - RASH GENERALISED [None]
  - RESPIRATORY DEPRESSION [None]
